FAERS Safety Report 14880016 (Version 2)
Quarter: 2018Q2

REPORT INFORMATION
  Report Type: Spontaneous
  Country: ES (occurrence: ES)
  Receive Date: 20180511
  Receipt Date: 20180531
  Transmission Date: 20180711
  Serious: Yes (Hospitalization)
  Sender: FDA-Public Use
  Company Number: ES-AUROBINDO-AUR-APL-2018-025085

PATIENT
  Age: 87 Year
  Sex: Male

DRUGS (19)
  1. FLUOXETINE [Suspect]
     Active Substance: FLUOXETINE HYDROCHLORIDE
     Dosage: 20 MG, QD, DRUG INTERVAL DOSAGE UNIT NUMBER:1 DAY
     Route: 065
  2. LATANOPROST  EYE DROPS, SOLUTION [Suspect]
     Active Substance: LATANOPROST
     Indication: PRODUCT USED FOR UNKNOWN INDICATION
     Dosage: 2 GTT, QD
     Route: 065
  3. IPRATROPIUM/ALBUTEROL [Suspect]
     Active Substance: ALBUTEROL\IPRATROPIUM
     Dosage: 1 DF, Q6H, DRUG INTERVAL DOSAGE UNIT NUMBER:6HOUR
     Route: 045
  4. VILDAGLIPTIN [Suspect]
     Active Substance: VILDAGLIPTIN
     Indication: PRODUCT USED FOR UNKNOWN INDICATION
     Dosage: 1 DF, QD
     Route: 065
  5. IPRATROPIUM/ALBUTEROL [Suspect]
     Active Substance: ALBUTEROL\IPRATROPIUM
     Indication: PRODUCT USED FOR UNKNOWN INDICATION
     Dosage: 1 DF, Q6H, DRUG INTERVAL DOSAGE UNIT NUMBER:6HOUR
     Route: 045
  6. QUETIAPIN MYLAN [Suspect]
     Active Substance: QUETIAPINE FUMARATE
     Indication: PRODUCT USED FOR UNKNOWN INDICATION
     Dosage: 25 MG, TID (2-2-1)
     Route: 065
  7. BUDESONIDE. [Suspect]
     Active Substance: BUDESONIDE
     Dosage: 1 DF, BID, DRUG INTERVAL DOSAGE UNIT NUMBER:1 DAY
     Route: 045
  8. MIRABEGRON [Suspect]
     Active Substance: MIRABEGRON
     Indication: PRODUCT USED FOR UNKNOWN INDICATION
     Dosage: 1 DF, QD
     Route: 065
  9. FENTANYL. [Suspect]
     Active Substance: FENTANYL
     Indication: DYSPNOEA
     Dosage: UNK
     Route: 048
  10. BUDESONIDE. [Suspect]
     Active Substance: BUDESONIDE
     Dosage: 1 DF, BID, DRUG INTERVAL DOSAGE UNIT NUMBER:1 DAY
     Route: 045
  11. VILDAGLIPTIN [Suspect]
     Active Substance: VILDAGLIPTIN
     Dosage: 1 DF, QD, DRUG INTERVAL DOSAGE UNIT NUMBER:1 DAY
     Route: 065
  12. MIRABEGRON [Suspect]
     Active Substance: MIRABEGRON
     Dosage: 1 DF, QD, DRUG INTERVAL DOSAGE UNIT NUMBER:1 DAY
     Route: 065
  13. MIRABEGRON [Suspect]
     Active Substance: MIRABEGRON
     Dosage: 1 DF, QD, DRUG INTERVAL DOSAGE UNIT NUMBER:1 DAY
     Route: 065
  14. APIXABAN [Suspect]
     Active Substance: APIXABAN
     Dosage: 2.5 MG, BID, DRUG INTERVAL DOSAGE UNIT NUMBER:1 DAY
     Route: 065
  15. FLUOXETINE [Suspect]
     Active Substance: FLUOXETINE HYDROCHLORIDE
     Indication: PRODUCT USED FOR UNKNOWN INDICATION
     Dosage: 20 MG, QD
     Route: 065
  16. APIXABAN [Suspect]
     Active Substance: APIXABAN
     Indication: PRODUCT USED FOR UNKNOWN INDICATION
     Dosage: 2.5 MG, BID, DRUG INTERVAL DOSAGE UNIT NUMBER:1 DAY
     Route: 065
  17. VILDAGLIPTIN [Suspect]
     Active Substance: VILDAGLIPTIN
     Dosage: 1 DF, QD, DRUG INTERVAL DOSAGE UNIT NUMBER:1 DAY
     Route: 065
  18. BUDESONIDE. [Suspect]
     Active Substance: BUDESONIDE
     Indication: PRODUCT USED FOR UNKNOWN INDICATION
     Dosage: UNK, BID (2)
     Route: 045
  19. FUROSEMIDA MYLAN [Suspect]
     Active Substance: FUROSEMIDE
     Indication: PRODUCT USED FOR UNKNOWN INDICATION
     Dosage: 40 MG, QD
     Route: 065

REACTIONS (8)
  - White blood cell count abnormal [Unknown]
  - Haemoglobin abnormal [Unknown]
  - C-reactive protein abnormal [Unknown]
  - Bone marrow oedema [Unknown]
  - Blood pressure abnormal [Unknown]
  - Product use in unapproved indication [Unknown]
  - Tachypnoea [Unknown]
  - Heart rate abnormal [Unknown]
